FAERS Safety Report 10288978 (Version 1)
Quarter: 2014Q3

REPORT INFORMATION
  Report Type: Spontaneous
  Country: CA (occurrence: CA)
  Receive Date: 20140709
  Receipt Date: 20140709
  Transmission Date: 20150326
  Serious: Yes (Life-Threatening, Hospitalization, Other)
  Sender: FDA-Public Use
  Company Number: CA-009507513-1407CAN003293

PATIENT
  Age: 53 Year
  Sex: Female

DRUGS (4)
  1. CITALOPRAM [Concomitant]
     Active Substance: CITALOPRAM HYDROBROMIDE
     Route: 048
  2. PEGETRON [Concomitant]
     Active Substance: PEGINTERFERON ALFA-2B\RIBAVIRIN
     Route: 048
  3. VICTRELIS [Suspect]
     Active Substance: BOCEPREVIR
     Dosage: 200.0 MILLIGRAM, 3 EVERY 1 DAY (S)
     Route: 048
  4. PEGASYS [Concomitant]
     Active Substance: PEGINTERFERON ALFA-2A
     Route: 065

REACTIONS (3)
  - Pancytopenia [Recovered/Resolved]
  - Dyspnoea [Recovered/Resolved]
  - Transfusion [Recovered/Resolved]
